FAERS Safety Report 18191332 (Version 1)
Quarter: 2020Q3

REPORT INFORMATION
  Report Type: Spontaneous
  Country: JP (occurrence: JP)
  Receive Date: 20200825
  Receipt Date: 20200825
  Transmission Date: 20201103
  Serious: Yes (Other)
  Sender: FDA-Public Use
  Company Number: JP-MACLEODS PHARMACEUTICALS US LTD-MAC2020027774

PATIENT

DRUGS (4)
  1. OFLOXACIN. [Concomitant]
     Active Substance: OFLOXACIN
     Indication: PRODUCT USED FOR UNKNOWN INDICATION
     Dosage: UNK
     Route: 061
  2. TRIAMCINOLONE ACETONIDE. [Suspect]
     Active Substance: TRIAMCINOLONE ACETONIDE
     Indication: MACULAR OEDEMA
     Dosage: 20 MILLIGRAM, SINGLE, INJECTION INTO POSTERIOR SUBTENON SPACE USING 27?GAUGE CANULA WITH DULL TIP
     Route: 047
  3. LEVOFLOXACIN. [Concomitant]
     Active Substance: LEVOFLOXACIN
     Indication: PRODUCT USED FOR UNKNOWN INDICATION
     Dosage: UNK UNK, QID
     Route: 065
  4. LEVOFLOXACIN. [Concomitant]
     Active Substance: LEVOFLOXACIN
     Dosage: 400 MILLIGRAM, QD, GIVEN AS TREATMENT
     Route: 065

REACTIONS (5)
  - Mass [Recovered/Resolved]
  - Endophthalmitis [Recovered/Resolved]
  - Macular detachment [Recovered/Resolved]
  - Retinal haemorrhage [Recovered/Resolved]
  - Orbital infection [Recovering/Resolving]
